FAERS Safety Report 19900759 (Version 1)
Quarter: 2021Q3

REPORT INFORMATION
  Report Type: Spontaneous
  Country: US (occurrence: US)
  Receive Date: 20210930
  Receipt Date: 20210930
  Transmission Date: 20211014
  Serious: No
  Sender: FDA-Public Use
  Company Number: None

PATIENT
  Sex: Male
  Weight: 71.1 kg

DRUGS (8)
  1. KISQALI [Suspect]
     Active Substance: RIBOCICLIB
     Dosage: ?          OTHER FREQUENCY:DAILY FOR 21/28D;?
     Route: 048
  2. CALCIUM  +D [Concomitant]
     Active Substance: CALCIUM\VITAMIN D
  3. CALTRATE [Concomitant]
     Active Substance: CALCIUM CARBONATE
  4. CITALOPRAM [Concomitant]
     Active Substance: CITALOPRAM HYDROBROMIDE
  5. GABAPENTIN. [Concomitant]
     Active Substance: GABAPENTIN
  6. ACETMINOPHEN [Concomitant]
  7. ATENOLOL. [Concomitant]
     Active Substance: ATENOLOL
  8. CLONAZEPAM. [Concomitant]
     Active Substance: CLONAZEPAM

REACTIONS (3)
  - Abdominal discomfort [None]
  - Eating disorder [None]
  - Pain [None]
